FAERS Safety Report 13098549 (Version 1)
Quarter: 2017Q1

REPORT INFORMATION
  Report Type: Spontaneous
  Country: CN (occurrence: CN)
  Receive Date: 20170109
  Receipt Date: 20170109
  Transmission Date: 20170428
  Serious: Yes (Hospitalization)
  Sender: FDA-Public Use
  Company Number: CN-ELI_LILLY_AND_COMPANY-CN201701001192

PATIENT
  Age: 70 Year
  Sex: Male
  Weight: 80 kg

DRUGS (3)
  1. HUMALOG MIX50/50 [Suspect]
     Active Substance: INSULIN LISPRO
     Dosage: 16 DF, QD
     Route: 058
     Dates: start: 2014
  2. HUMALOG MIX50/50 [Suspect]
     Active Substance: INSULIN LISPRO
     Indication: DIABETES MELLITUS
     Dosage: 20 DF, EACH MORNING
     Route: 058
     Dates: start: 2014
  3. HUMALOG MIX50/50 [Suspect]
     Active Substance: INSULIN LISPRO
     Dosage: 14 DF, EACH EVENING
     Route: 058
     Dates: start: 2014

REACTIONS (1)
  - Blood glucose increased [Unknown]
